FAERS Safety Report 8105733-1 (Version None)
Quarter: 2012Q1

REPORT INFORMATION
  Report Type: 
  Country: None (occurrence: None)
  Receive Date: 20120201
  Receipt Date: 20120125
  Transmission Date: 20120608
  Serious: No
  Sender: FDA-Public Use
  Company Number: US-B.I. PHARMACEUTICALS,INC./RIDGEFIELD-2011-BP-23283BP

PATIENT
  Sex: Female

DRUGS (10)
  1. BISOPROLOL [Concomitant]
     Indication: HYPERTENSION
     Dates: start: 20110101, end: 20120101
  2. DIGOXIN [Concomitant]
     Indication: ATRIAL FIBRILLATION
     Route: 048
     Dates: start: 20110101, end: 20120101
  3. LISINOPRIL [Concomitant]
  4. CARVEDILOL [Concomitant]
     Indication: HYPERTENSION
     Dates: start: 20110101, end: 20120101
  5. SPIRONOLACTONE [Concomitant]
     Indication: HYPERTENSION
     Dates: start: 20110101, end: 20120101
  6. BISOPROLOL - FUM [Concomitant]
     Indication: SLEEP DISORDER
     Route: 048
  7. PRADAXA [Suspect]
     Dosage: 300 MG
     Route: 048
     Dates: start: 20110801, end: 20120109
  8. FUROSEMIDE [Concomitant]
     Indication: FLUID RETENTION
     Dates: start: 20110101, end: 20120101
  9. PRADAXA [Suspect]
     Indication: ATRIAL FIBRILLATION
     Dosage: 300 MG
     Route: 048
     Dates: start: 20110727
  10. POTASSIUM CHLORIDE [Concomitant]
     Route: 048

REACTIONS (6)
  - MEMORY IMPAIRMENT [None]
  - AMNESIA [None]
  - ABDOMINAL PAIN UPPER [None]
  - RASH [None]
  - NAUSEA [None]
  - HYPERTENSION [None]
